FAERS Safety Report 25170647 (Version 1)
Quarter: 2025Q2

REPORT INFORMATION
  Report Type: Spontaneous
  Country: NL (occurrence: NL)
  Receive Date: 20250408
  Receipt Date: 20250408
  Transmission Date: 20250717
  Serious: Yes (Other)
  Sender: HETERO
  Company Number: None

PATIENT
  Age: 41 Year
  Sex: Female
  Weight: 78 kg

DRUGS (1)
  1. CITALOPRAM [Suspect]
     Active Substance: CITALOPRAM
     Indication: Depressed mood
     Route: 048
     Dates: start: 20250201, end: 20250316

REACTIONS (6)
  - Neuropathy peripheral [Recovering/Resolving]
  - Coordination abnormal [Recovering/Resolving]
  - Muscle spasms [Recovering/Resolving]
  - Photopsia [Recovering/Resolving]
  - Dizziness [Recovering/Resolving]
  - Disturbance in attention [Recovering/Resolving]
